FAERS Safety Report 4990239-9 (Version None)
Quarter: 2006Q2

REPORT INFORMATION
  Report Type: 
  Country: None (occurrence: None)
  Receive Date: 20060503
  Receipt Date: 20051104
  Transmission Date: 20061013
  Serious: Yes (Hospitalization)
  Sender: FDA-Public Use
  Company Number: US-AVENTIS-200519219US

PATIENT
  Sex: Female
  Weight: 130.9 kg

DRUGS (14)
  1. LANTUS [Suspect]
     Indication: DIABETES MELLITUS NON-INSULIN-DEPENDENT
     Dosage: DOSE UNIT: UNITS
     Route: 058
     Dates: start: 20050101
  2. OPTICLIK (INSULIN INJECTION PEN) [Suspect]
     Dates: start: 20050101
  3. GLUCOPHAGE [Concomitant]
     Dosage: DOSE: UNK
  4. GLUCOTROL [Concomitant]
     Dosage: DOSE: UNK
  5. POTASSIUM [Concomitant]
     Dosage: DOSE: UNK
  6. PAXIL [Concomitant]
     Dosage: DOSE: UNK
  7. BENICAR HCT [Concomitant]
     Dosage: DOSE: UNK
  8. LASIX [Concomitant]
     Dosage: DOSE: UNK
  9. ASPIRIN [Concomitant]
     Dosage: DOSE: UNK
  10. ZOCOR [Concomitant]
     Dosage: DOSE: UNK
  11. LOTREL [Concomitant]
     Dosage: DOSE: UNK
  12. TYLENOL (CAPLET) [Concomitant]
     Dosage: DOSE: UNK
  13. DARVOCET [Concomitant]
     Dosage: DOSE: UNK
  14. XALATAN [Concomitant]
     Dosage: DOSE: UNK

REACTIONS (3)
  - ABASIA [None]
  - ASTHENIA [None]
  - BLOOD GLUCOSE INCREASED [None]
